FAERS Safety Report 4673003-X (Version None)
Quarter: 2005Q2

REPORT INFORMATION
  Report Type: 
  Country: None (occurrence: None)
  Receive Date: 20050524
  Receipt Date: 20050518
  Transmission Date: 20051028
  Serious: Yes (Death)
  Sender: FDA-Public Use
  Company Number: 05-04-0717

PATIENT
  Age: 33 Year
  Sex: Male
  Weight: 163.2949 kg

DRUGS (6)
  1. CLOZAPINE TABLETS - IVAX PHARMACEUTICALS, INC [Suspect]
     Indication: SCHIZOPHRENIA
     Dosage: 400MG QD ORAL
     Route: 048
     Dates: start: 19981001, end: 20050429
  2. ZOLOFT [Concomitant]
  3. ENALAPRIL MALEATE [Concomitant]
  4. LIPITOR [Concomitant]
  5. GLIPIZIDE [Concomitant]
  6. METFORMIN HCL [Concomitant]

REACTIONS (2)
  - CARDIAC ARREST [None]
  - MYOCARDIAL INFARCTION [None]
